FAERS Safety Report 5069917-1 (Version None)
Quarter: 2006Q3

REPORT INFORMATION
  Report Type: 
  Country: None (occurrence: None)
  Receive Date: 20060731
  Receipt Date: 20060719
  Transmission Date: 20061208
  Serious: Yes (Congenital Anomaly, Other)
  Sender: FDA-Public Use
  Company Number: 2006074861

PATIENT
  Age: 32 Year
  Sex: Female

DRUGS (9)
  1. LYRICA [Suspect]
     Indication: NEURALGIA
     Dosage: 375 MG (75 MG, 2 IN 1 D), ORAL
     Route: 048
     Dates: start: 20060101, end: 20060601
  2. NEURONTIN [Suspect]
     Indication: DRUG USE FOR UNKNOWN INDICATION
  3. TIZANIDINE HCL [Concomitant]
  4. REMERON [Concomitant]
  5. CLORAZEPATE DIPOTASSIUM [Concomitant]
  6. FLECTOR (DICLOFENAC SODIUM) [Concomitant]
  7. ACETAMINOPHEN [Concomitant]
  8. MAGNESIUM [Concomitant]
  9. ALL OTHER THERAPEUTIC PRODUCTS [Concomitant]

REACTIONS (2)
  - MUSCLE SPASMS [None]
  - TACHYCARDIA PAROXYSMAL [None]
